FAERS Safety Report 18665855 (Version 1)
Quarter: 2020Q4

REPORT INFORMATION
  Report Type: Report from Study
  Country: GB (occurrence: GB)
  Receive Date: 20201226
  Receipt Date: 20201226
  Transmission Date: 20210114
  Serious: Yes (Other)
  Sender: FDA-Public Use
  Company Number: GB-GLAXOSMITHKLINE-GB2020250091

PATIENT
  Age: 45 Year
  Sex: Male

DRUGS (4)
  1. EPOPROSTENOL SODIUM. [Suspect]
     Active Substance: EPOPROSTENOL SODIUM
     Indication: DRUG THERAPY
     Dosage: UNK
     Route: 065
  2. DALTEPARIN [Suspect]
     Active Substance: DALTEPARIN
     Indication: DRUG THERAPY
     Dosage: UNK
     Route: 065
  3. DALTEPARIN [Suspect]
     Active Substance: DALTEPARIN
     Indication: THROMBOSIS PROPHYLAXIS
     Dosage: UNK UNK, BID
     Route: 065
  4. EPOPROSTENOL SODIUM. [Suspect]
     Active Substance: EPOPROSTENOL SODIUM
     Indication: THROMBOSIS PROPHYLAXIS
     Dosage: UNK
     Route: 042

REACTIONS (3)
  - Off label use [Unknown]
  - Hypotension [Unknown]
  - Spinal cord ischaemia [Not Recovered/Not Resolved]
